FAERS Safety Report 10905370 (Version 1)
Quarter: 2015Q1

REPORT INFORMATION
  Report Type: Spontaneous
  Country: US (occurrence: US)
  Receive Date: 20150311
  Receipt Date: 20150311
  Transmission Date: 20150721
  Serious: No
  Sender: FDA-Public Use
  Company Number: US-ASTRAZENECA-2015SE19572

PATIENT

DRUGS (14)
  1. FOSAMAX [Suspect]
     Active Substance: ALENDRONATE SODIUM
     Route: 065
  2. ACETYLSALICYLIC ACID [Suspect]
     Active Substance: ASPIRIN
     Route: 065
  3. AMLODIPINE BESILATE [Suspect]
     Active Substance: AMLODIPINE BESYLATE
     Dosage: NON AZ
     Route: 065
  4. AZULFIDINE [Suspect]
     Active Substance: SULFASALAZINE
     Route: 065
  5. PREDNISONE. [Suspect]
     Active Substance: PREDNISONE
     Route: 065
  6. ARAVA [Suspect]
     Active Substance: LEFLUNOMIDE
     Route: 065
  7. LOSARTAN HYDROCHLOROTHIAZIDE [Suspect]
     Active Substance: HYDROCHLOROTHIAZIDE\LOSARTAN POTASSIUM
     Route: 065
  8. RESTORIL [Suspect]
     Active Substance: TEMAZEPAM
     Route: 065
  9. ZOCOR [Suspect]
     Active Substance: SIMVASTATIN
     Route: 065
  10. METHOTREXATE SODIUM. [Suspect]
     Active Substance: METHOTREXATE SODIUM
     Route: 065
  11. PLAQUENIL [Suspect]
     Active Substance: HYDROXYCHLOROQUINE SULFATE
     Route: 065
  12. SPIRIVA [Suspect]
     Active Substance: TIOTROPIUM BROMIDE MONOHYDRATE
     Route: 065
  13. NEXIUM [Suspect]
     Active Substance: ESOMEPRAZOLE MAGNESIUM
     Route: 048
  14. METOPROLOL TARTRATE. [Suspect]
     Active Substance: METOPROLOL TARTRATE
     Route: 065

REACTIONS (1)
  - Drug hypersensitivity [Unknown]
